FAERS Safety Report 11137823 (Version 1)
Quarter: 2015Q2

REPORT INFORMATION
  Report Type: Spontaneous
  Country: PR (occurrence: PR)
  Receive Date: 20150526
  Receipt Date: 20150526
  Transmission Date: 20150821
  Serious: No
  Sender: FDA-Public Use
  Company Number: PR-MALLINCKRODT-T201500798

PATIENT
  Sex: Female

DRUGS (1)
  1. H.P. ACTHAR [Suspect]
     Active Substance: CORTICOTROPIN
     Indication: GLOMERULONEPHRITIS
     Dosage: 64 U, BIWEEKLY
     Route: 065
     Dates: start: 20141229

REACTIONS (7)
  - Injection site swelling [Unknown]
  - Injection site urticaria [Unknown]
  - Erythema [Unknown]
  - Injection site bruising [Unknown]
  - Back pain [Unknown]
  - Nausea [Unknown]
  - Injection site erythema [Unknown]
